FAERS Safety Report 6992623-0 (Version None)
Quarter: 2010Q3

REPORT INFORMATION
  Report Type: 
  Country: None (occurrence: None)
  Receive Date: 20100917
  Receipt Date: 20100908
  Transmission Date: 20110219
  Serious: Yes (Other)
  Sender: FDA-Public Use
  Company Number: FR-ASTRAZENECA-2010SE42574

PATIENT
  Age: 27219 Day
  Sex: Male

DRUGS (17)
  1. MOPRAL [Suspect]
     Route: 042
     Dates: start: 20100527, end: 20100529
  2. PROPOFOL [Suspect]
     Route: 042
     Dates: start: 20100530, end: 20100531
  3. LOVENOX [Suspect]
     Route: 058
     Dates: start: 20100527, end: 20100531
  4. PIPERACILLIN AND TAZOBACTAM [Suspect]
     Dosage: 4 G/500 MG, 3 DF DAILY
     Route: 042
     Dates: start: 20100527, end: 20100607
  5. HUMALOG [Suspect]
     Route: 058
     Dates: start: 20100527, end: 20100603
  6. VOLUVEN [Suspect]
     Route: 042
     Dates: end: 20100601
  7. BRISTOPEN [Suspect]
     Route: 042
     Dates: start: 20100530, end: 20100530
  8. AMIKIN [Suspect]
     Route: 042
     Dates: start: 20100530, end: 20100603
  9. VANCOMYCIN HCL [Suspect]
     Route: 042
     Dates: start: 20100531, end: 20100607
  10. SERESTA [Suspect]
     Dosage: 20 MG IN THE MORNING, 20 MG AT NOON AND 50 MG IN THE EVENING
     Route: 048
     Dates: start: 20100528, end: 20100529
  11. SUFENTA PRESERVATIVE FREE [Suspect]
     Dosage: 5 CC PER HOUR
     Route: 042
     Dates: start: 20100530, end: 20100531
  12. BRICANYL [Concomitant]
     Indication: CHRONIC OBSTRUCTIVE PULMONARY DISEASE
     Route: 055
     Dates: start: 20100401
  13. ATROVENT ADULTES [Concomitant]
     Indication: CHRONIC OBSTRUCTIVE PULMONARY DISEASE
     Dosage: 0.5 MG/2 ML, 3 DF DAILY
     Route: 055
     Dates: start: 20100401
  14. CORDARONE [Concomitant]
     Route: 048
  15. AVANDAMET [Concomitant]
     Route: 048
  16. ALDACTONE [Concomitant]
     Route: 048
  17. KARDEGIC [Concomitant]
     Route: 048
     Dates: start: 20100529, end: 20100529

REACTIONS (1)
  - HEPARIN-INDUCED THROMBOCYTOPENIA [None]
